FAERS Safety Report 24955323 (Version 1)
Quarter: 2025Q1

REPORT INFORMATION
  Report Type: Report from Study
  Country: US (occurrence: US)
  Receive Date: 20250211
  Receipt Date: 20250211
  Transmission Date: 20250409
  Serious: Yes (Other)
  Sender: ABBVIE
  Company Number: US-ABBVIE-6123324

PATIENT
  Sex: Male

DRUGS (1)
  1. SKYRIZI [Suspect]
     Active Substance: RISANKIZUMAB-RZAA
     Indication: Crohn^s disease
     Route: 058

REACTIONS (6)
  - Hip arthroplasty [Unknown]
  - Injection site pain [Unknown]
  - Injection site induration [Unknown]
  - Injection site papule [Unknown]
  - Nerve injury [Unknown]
  - Pain in extremity [Unknown]
